FAERS Safety Report 21901542 (Version 3)
Quarter: 2023Q1

REPORT INFORMATION
  Report Type: Spontaneous
  Country: JP (occurrence: JP)
  Receive Date: 20230123
  Receipt Date: 20230214
  Transmission Date: 20230418
  Serious: Yes (Hospitalization, Other)
  Sender: FDA-Public Use
  Company Number: JP-JNJFOC-20230132259

PATIENT
  Age: 25 Year
  Sex: Female

DRUGS (3)
  1. OPSUMIT [Suspect]
     Active Substance: MACITENTAN
     Indication: Newborn persistent pulmonary hypertension
     Route: 048
  2. EPOPROSTENOL [Suspect]
     Active Substance: EPOPROSTENOL
     Indication: Newborn persistent pulmonary hypertension
     Dosage: DOSE UNKNOWN
     Route: 041
  3. PHENYLEPHRINE HYDROCHLORIDE [Suspect]
     Active Substance: PHENYLEPHRINE HYDROCHLORIDE
     Indication: Systolic anterior motion of mitral valve
     Dosage: DOSE UNKNOWN
     Route: 042

REACTIONS (6)
  - Mitral valve incompetence [Unknown]
  - Left ventricle outflow tract obstruction [Unknown]
  - Palpitations [Unknown]
  - Blood pressure decreased [Unknown]
  - Systolic anterior motion of mitral valve [Recovered/Resolved]
  - Hypotension [Unknown]
